FAERS Safety Report 12162296 (Version 1)
Quarter: 2016Q1

REPORT INFORMATION
  Report Type: Spontaneous
  Country: IN (occurrence: IN)
  Receive Date: 20160309
  Receipt Date: 20160309
  Transmission Date: 20160526
  Serious: Yes (Hospitalization)
  Sender: FDA-Public Use
  Company Number: IN-009507513-1603IND003682

PATIENT
  Age: 67 Year
  Sex: Male
  Weight: 72 kg

DRUGS (1)
  1. JANUVIA [Suspect]
     Active Substance: SITAGLIPTIN PHOSPHATE
     Indication: DIABETES MELLITUS
     Dosage: 1 DF, OD
     Route: 048

REACTIONS (3)
  - Pyrexia [Unknown]
  - Urinary tract infection [Unknown]
  - Haematemesis [Unknown]
